FAERS Safety Report 23485710 (Version 1)
Quarter: 2024Q1

REPORT INFORMATION
  Report Type: Report from Study
  Country: US (occurrence: US)
  Receive Date: 20240206
  Receipt Date: 20240206
  Transmission Date: 20240410
  Serious: Yes (Other)
  Sender: FDA-Public Use
  Company Number: US-UCBSA-2024004254

PATIENT
  Sex: Female

DRUGS (1)
  1. BRIVARACETAM [Suspect]
     Active Substance: BRIVARACETAM
     Indication: Seizure
     Dosage: 250 MILLIGRAM, DAILY (100 MILLIGRAM 1 TABLET IN MORNING AND 1.5 TABLET IN NIGHT)
     Route: 048

REACTIONS (7)
  - Seizure [Not Recovered/Not Resolved]
  - Stress [Not Recovered/Not Resolved]
  - Nervousness [Not Recovered/Not Resolved]
  - Muscular weakness [Not Recovered/Not Resolved]
  - Product availability issue [Unknown]
  - Product use issue [Unknown]
  - Overdose [Unknown]
